FAERS Safety Report 7645456-6 (Version None)
Quarter: 2011Q3

REPORT INFORMATION
  Report Type: 
  Country: None (occurrence: None)
  Receive Date: 20110729
  Receipt Date: 20110718
  Transmission Date: 20111222
  Serious: Yes (Hospitalization, Other)
  Sender: FDA-Public Use
  Company Number: GB-ELI_LILLY_AND_COMPANY-GB201106005891

PATIENT
  Sex: Female
  Weight: 85 kg

DRUGS (4)
  1. ZYPREXA [Suspect]
     Indication: PSYCHOTIC DISORDER
     Dosage: 10 MG, QD
     Route: 048
     Dates: start: 20071122
  2. FLUOXETINE [Concomitant]
     Dosage: UNK
     Dates: start: 20070101, end: 20081001
  3. ZYPREXA [Suspect]
     Dosage: 5 MG, QD
     Route: 048
     Dates: start: 20100525
  4. TRAZODONE HCL [Concomitant]
     Dosage: UNK

REACTIONS (3)
  - ENDOMETRIAL CANCER [None]
  - ABDOMINAL PAIN [None]
  - TENDERNESS [None]
